FAERS Safety Report 5413810-9 (Version None)
Quarter: 2007Q3

REPORT INFORMATION
  Report Type: 
  Country: None (occurrence: None)
  Receive Date: 20070814
  Receipt Date: 20060725
  Transmission Date: 20080115
  Serious: No
  Sender: FDA-Public Use
  Company Number: US-BRISTOL-MYERS SQUIBB COMPANY-13346606

PATIENT
  Age: 54 Year
  Sex: Male
  Weight: 65 kg

DRUGS (17)
  1. REYATAZ [Suspect]
  2. COMBIVIR [Concomitant]
  3. MULTI-VITAMIN [Concomitant]
  4. BONIVA [Concomitant]
  5. CALCIUM CHLORIDE [Concomitant]
  6. MAGNESIUM SULFATE [Concomitant]
  7. SELENIUM SULFIDE [Concomitant]
  8. VITAMIN D [Concomitant]
  9. VITAMIN E [Concomitant]
  10. FLAXSEED [Concomitant]
  11. FISH OIL [Concomitant]
  12. VITAMIN B COMPLEX CAP [Concomitant]
  13. VITAMIN B6 [Concomitant]
  14. NIACIN [Concomitant]
  15. GARLIC [Concomitant]
  16. DHEA [Concomitant]
  17. GLUCOSAMINE [Concomitant]

REACTIONS (1)
  - INSOMNIA [None]
